FAERS Safety Report 16294396 (Version 1)
Quarter: 2019Q2

REPORT INFORMATION
  Report Type: Spontaneous
  Country: US (occurrence: US)
  Receive Date: 20190509
  Receipt Date: 20190509
  Transmission Date: 20190711
  Serious: No
  Sender: FDA-Public Use
  Company Number: US-ROCHE-2184121

PATIENT
  Sex: Male

DRUGS (3)
  1. ESBRIET [Suspect]
     Active Substance: PIRFENIDONE
     Dosage: 2 TABLETS
     Route: 065
  2. ESBRIET [Suspect]
     Active Substance: PIRFENIDONE
     Indication: IDIOPATHIC PULMONARY FIBROSIS
     Dosage: ONGOING: YES, 1 TABLET
     Route: 065
     Dates: start: 20180821
  3. ESBRIET [Suspect]
     Active Substance: PIRFENIDONE
     Dosage: 3 TABLETS
     Route: 065

REACTIONS (1)
  - Dizziness [Not Recovered/Not Resolved]
